FAERS Safety Report 5683927-2 (Version None)
Quarter: 2008Q1

REPORT INFORMATION
  Report Type: 
  Country: None (occurrence: None)
  Receive Date: 20080328
  Receipt Date: 20080319
  Transmission Date: 20080703
  Serious: Yes (Other)
  Sender: FDA-Public Use
  Company Number: PHEH2008US03090

PATIENT
  Age: 70 Year
  Sex: Female

DRUGS (3)
  1. TEGRETOL [Suspect]
     Indication: EPILEPSY
  2. BONIVA [Suspect]
     Indication: OSTEOPENIA
     Dosage: 150 MG, QMO
     Route: 048
     Dates: start: 20060805, end: 20080201
  3. PRIMIDONE [Concomitant]

REACTIONS (4)
  - CONDITION AGGRAVATED [None]
  - CONVULSION [None]
  - DRUG EFFECT DECREASED [None]
  - DRUG INTERACTION [None]
